FAERS Safety Report 6566494-0 (Version None)
Quarter: 2010Q1

REPORT INFORMATION
  Report Type: 
  Country: None (occurrence: None)
  Receive Date: 20100127
  Receipt Date: 20100111
  Transmission Date: 20100710
  Serious: Yes (Hospitalization)
  Sender: FDA-Public Use
  Company Number: APP201000050

PATIENT
  Age: 4 Year
  Sex: Male

DRUGS (12)
  1. CYTARABINE [Suspect]
     Indication: ACUTE LYMPHOCYTIC LEUKAEMIA
     Dosage: 24 MG, ON DAY 15 AND DAY 29, INTRATHECAL
     Route: 037
     Dates: start: 20090508
  2. METHOTREXATE [Suspect]
     Indication: ACUTE LYMPHOCYTIC LEUKAEMIA
     Dosage: 8 - 15MG ON DAY 15 AND DAY 29, INTRATHECAL
     Route: 037
     Dates: start: 20090508
  3. HYDROCORTONE [Suspect]
     Indication: ACUTE LYMPHOCYTIC LEUKAEMIA
     Dosage: 8 - 15 MG ON DAY 15 AND DAY 29, INTRATHECAL
     Route: 037
     Dates: start: 20090508
  4. DAUNORUBICIN HCL [Suspect]
     Indication: ACUTE LYMPHOCYTIC LEUKAEMIA
     Dosage: 25 MG/M2, TOTAL DOSE 32 MG; DAY 15 AND 22, INTRAVENOUS
     Route: 042
     Dates: start: 20090508
  5. SPRYCEL [Suspect]
     Indication: ACUTE LYMPHOCYTIC LEUKAEMIA
     Dosage: 60 MG/M2, ON DAY 15 - 28; TOTAL DOSE 560 MG, ORAL
     Route: 048
  6. PREDNISONE [Suspect]
     Indication: ACUTE LYMPHOCYTIC LEUKAEMIA
     Dosage: 30 MG/M2, OD DAY 15 - 28; TOTAL DOSE 436.8 MG, ORAL
     Route: 048
  7. VINCRISTINE SULFATE [Suspect]
     Indication: ACUTE LYMPHOCYTIC LEUKAEMIA
     Dosage: 1.5 MG/M2, ON DAYS 15 AND 22; TOTAL DOSE 1.92MG, INTRAVENOUS
     Route: 042
  8. BACTRIM [Suspect]
     Indication: DRUG USE FOR UNKNOWN INDICATION
  9. GRANISETRON (GRANISETRON) [Suspect]
     Indication: DRUG USE FOR UNKNOWN INDICATION
  10. NEURONTIN [Suspect]
     Indication: DRUG USE FOR UNKNOWN INDICATION
  11. ONDANSETRON [Suspect]
     Indication: DRUG USE FOR UNKNOWN INDICATION
  12. ZOSYN [Suspect]
     Indication: DRUG USE FOR UNKNOWN INDICATION

REACTIONS (7)
  - ADENOVIRUS INFECTION [None]
  - ALANINE AMINOTRANSFERASE INCREASED [None]
  - ASPARTATE AMINOTRANSFERASE INCREASED [None]
  - GAMMA-GLUTAMYLTRANSFERASE INCREASED [None]
  - HEPATIC STEATOSIS [None]
  - HEPATITIS INFECTIOUS [None]
  - LYMPHOPENIA [None]
